FAERS Safety Report 20416014 (Version 1)
Quarter: 2022Q1

REPORT INFORMATION
  Report Type: Spontaneous
  Country: FR (occurrence: FR)
  Receive Date: 20220202
  Receipt Date: 20220202
  Transmission Date: 20220424
  Serious: Yes (Other)
  Sender: FDA-Public Use
  Company Number: None

PATIENT
  Age: 75 Year
  Sex: Male
  Weight: 62.5 kg

DRUGS (4)
  1. DULOXETINE [Suspect]
     Active Substance: DULOXETINE
     Indication: Neuralgia
     Dosage: DULOXETINE HYDROCHLORIDE,THERAPY START DATE :ASKU,UNIT DOSE:30MG
     Route: 048
  2. GABAPENTIN [Suspect]
     Active Substance: GABAPENTIN
     Indication: Neuralgia
     Dosage: 3000MG,THERAPY START DATE :ASKU
     Route: 048
  3. CLOMIPRAMINE HYDROCHLORIDE [Suspect]
     Active Substance: CLOMIPRAMINE HYDROCHLORIDE
     Indication: Neuralgia
     Dosage: 25MG,THERAPY START DATE:ASKU
     Route: 048
  4. CANNABIDIOL [Suspect]
     Active Substance: CANNABIDIOL
     Indication: Neuralgia
     Dosage: 120MG/DAY OF CBD,CBD 50 LGP CLASSIC,UNIT DOSE:2.4ML
     Route: 048
     Dates: start: 20210930, end: 20211208

REACTIONS (2)
  - Hallucination [Not Recovered/Not Resolved]
  - Illusion [Not Recovered/Not Resolved]

NARRATIVE: CASE EVENT DATE: 20211124
